FAERS Safety Report 14216113 (Version 2)
Quarter: 2017Q4

REPORT INFORMATION
  Report Type: Spontaneous
  Country: FR (occurrence: FR)
  Receive Date: 20171122
  Receipt Date: 20171226
  Transmission Date: 20180321
  Serious: Yes (Other)
  Sender: FDA-Public Use
  Company Number: FR-MERCK KGAA-2034891

PATIENT
  Age: 52 Year
  Sex: Female

DRUGS (1)
  1. NOVOTHYROX [Suspect]
     Active Substance: LEVOTHYROXINE SODIUM
     Indication: POST PROCEDURAL HYPOTHYROIDISM
     Dates: start: 201706, end: 201711

REACTIONS (10)
  - Fatigue [None]
  - Hypoacusis [None]
  - Formication [None]
  - Sleep disorder [Recovering/Resolving]
  - Agitation [None]
  - Weight decreased [Recovering/Resolving]
  - Headache [None]
  - Blood thyroid stimulating hormone abnormal [None]
  - Gait disturbance [Recovering/Resolving]
  - Palpitations [Recovering/Resolving]

NARRATIVE: CASE EVENT DATE: 2017
